FAERS Safety Report 18625743 (Version 1)
Quarter: 2020Q4

REPORT INFORMATION
  Report Type: Spontaneous
  Country: GB (occurrence: GB)
  Receive Date: 20201216
  Receipt Date: 20201216
  Transmission Date: 20210114
  Serious: Yes (Other)
  Sender: FDA-Public Use
  Company Number: GB-ASCEND THERAPEUTICS US, LLC-2103070

PATIENT
  Age: 53 Year
  Sex: Female

DRUGS (3)
  1. OESTROGEL (ESTRADIOL) [Suspect]
     Active Substance: ESTRADIOL
     Route: 062
  2. ESTROGEL [Suspect]
     Active Substance: ESTRADIOL
  3. ESTROGEL [Suspect]
     Active Substance: ESTRADIOL
     Indication: MENOPAUSAL SYMPTOMS
     Route: 062

REACTIONS (2)
  - Drug ineffective [Unknown]
  - Menopausal symptoms [Recovered/Resolved]
